FAERS Safety Report 4935985-8 (Version None)
Quarter: 2006Q1

REPORT INFORMATION
  Report Type: 
  Country: None (occurrence: None)
  Receive Date: 20060307
  Receipt Date: 20050812
  Transmission Date: 20060701
  Serious: No
  Sender: FDA-Public Use
  Company Number: US-GLAXOSMITHKLINE-A0570309A

PATIENT
  Sex: Female

DRUGS (1)
  1. REQUIP [Suspect]
     Indication: RESTLESS LEGS SYNDROME
     Dosage: 1TAB PER DAY
     Route: 048

REACTIONS (4)
  - INSOMNIA [None]
  - MALAISE [None]
  - NIGHTMARE [None]
  - STOMACH DISCOMFORT [None]
